FAERS Safety Report 8790756 (Version 1)
Quarter: 2012Q4

REPORT INFORMATION
  Report Type: Spontaneous
  Country: US (occurrence: None)
  Receive Date: 20120906
  Receipt Date: 20120906
  Transmission Date: 20130627
  Serious: Yes (Life-Threatening, Hospitalization)
  Sender: FDA-Public Use
  Company Number: 100317-000188

PATIENT
  Age: 52 Year
  Sex: Male

DRUGS (4)
  1. PROACTIV RENEWING CLEANSER [Suspect]
     Indication: ACNE
     Dosage: Once daily dermal
     Route: 061
     Dates: start: 20100313
  2. PROACTIV REPAIRING TREATMENT [Suspect]
     Indication: ACNE
     Dosage: Once daily dermal
     Route: 061
     Dates: start: 20100313
  3. VITAMINS [Concomitant]
  4. PROACTIVE REPAIRING TREATMENT [Suspect]
     Indication: ACNE
     Route: 061
     Dates: start: 20100313

REACTIONS (2)
  - Swelling face [None]
  - Drug hypersensitivity [None]
